FAERS Safety Report 25659456 (Version 2)
Quarter: 2025Q3

REPORT INFORMATION
  Report Type: Spontaneous
  Country: US (occurrence: US)
  Receive Date: 20250808
  Receipt Date: 20250904
  Transmission Date: 20251020
  Serious: No
  Sender: CSL BEHRING
  Company Number: US-BEH-2025214647

PATIENT
  Age: 72 Year
  Sex: Female

DRUGS (2)
  1. HIZENTRA [Suspect]
     Active Substance: HUMAN IMMUNOGLOBULIN G
     Indication: IgG deficiency
     Dosage: 9 G, QW
     Route: 058
     Dates: start: 20200309, end: 20250716
  2. HIZENTRA [Suspect]
     Active Substance: HUMAN IMMUNOGLOBULIN G
     Dosage: 9 G, QW
     Route: 058
     Dates: start: 20200309, end: 20250716

REACTIONS (1)
  - Chronic disease [Fatal]

NARRATIVE: CASE EVENT DATE: 20250723
